FAERS Safety Report 8910724 (Version 1)
Quarter: 2012Q4

REPORT INFORMATION
  Report Type: Spontaneous
  Country: NL (occurrence: None)
  Receive Date: 20121107
  Receipt Date: 20121107
  Transmission Date: 20130627
  Serious: Yes (Hospitalization)
  Sender: FDA-Public Use
  Company Number: 2012AP003678

PATIENT

DRUGS (1)
  1. LITHIUM [Suspect]

REACTIONS (2)
  - Syncope [None]
  - Maternal drugs affecting foetus [None]
